FAERS Safety Report 23723038 (Version 1)
Quarter: 2024Q2

REPORT INFORMATION
  Report Type: Spontaneous
  Country: US (occurrence: US)
  Receive Date: 20240409
  Receipt Date: 20240409
  Transmission Date: 20240715
  Serious: Yes (Other)
  Sender: FDA-Public Use
  Company Number: US-BRISTOL-MYERS SQUIBB COMPANY-2024-053109

PATIENT
  Age: 17 Year
  Sex: Male

DRUGS (16)
  1. DASATINIB [Suspect]
     Active Substance: DASATINIB
     Indication: Acute lymphocytic leukaemia
     Dosage: DOSE : UNAVAILABLE;     FREQ : UNAVAILABLE
     Route: 048
  2. ERGOCALCIFEROL [Concomitant]
     Active Substance: ERGOCALCIFEROL
  3. BISACODYL [Concomitant]
     Active Substance: BISACODYL
  4. FAMOTIDINE [Concomitant]
     Active Substance: FAMOTIDINE
  5. ATIVAN [Concomitant]
     Active Substance: LORAZEPAM
  6. MEGESTROL ACETATE [Concomitant]
     Active Substance: MEGESTROL ACETATE
  7. LEVEMIR [Concomitant]
     Active Substance: INSULIN DETEMIR
  8. GLUCAGON [Concomitant]
     Active Substance: GLUCAGON\GLUCAGON HYDROCHLORIDE\WATER
  9. ROXICODONE [Concomitant]
     Active Substance: OXYCODONE HYDROCHLORIDE
  10. IBUPROFEN [Concomitant]
     Active Substance: IBUPROFEN
  11. MIRALAX [Concomitant]
     Active Substance: POLYETHYLENE GLYCOL 3350
  12. NARCAN [Concomitant]
     Active Substance: NALOXONE HYDROCHLORIDE
  13. HIZENTRA [Concomitant]
     Active Substance: HUMAN IMMUNOGLOBULIN G
  14. DOLOPHINE [Concomitant]
     Active Substance: METHADONE HYDROCHLORIDE
  15. FENTANYL [Concomitant]
     Active Substance: FENTANYL\FENTANYL CITRATE
  16. INSULIN ASPART [Concomitant]
     Active Substance: INSULIN ASPART

REACTIONS (1)
  - Acute lymphocytic leukaemia recurrent [Unknown]
